FAERS Safety Report 20599339 (Version 2)
Quarter: 2022Q1

REPORT INFORMATION
  Report Type: Spontaneous
  Country: CA (occurrence: CA)
  Receive Date: 20220315
  Receipt Date: 20220322
  Transmission Date: 20220423
  Serious: Yes (Other)
  Sender: FDA-Public Use
  Company Number: CA-BAUSCH-BL-2022-005640

PATIENT
  Sex: Female

DRUGS (235)
  1. BISACODYL [Suspect]
     Active Substance: BISACODYL
     Indication: Product used for unknown indication
  2. BISACODYL [Suspect]
     Active Substance: BISACODYL
     Route: 065
  3. BISACODYL [Suspect]
     Active Substance: BISACODYL
     Route: 065
  4. BISACODYL [Suspect]
     Active Substance: BISACODYL
  5. ALPRAZOLAM [Suspect]
     Active Substance: ALPRAZOLAM
     Indication: Product used for unknown indication
  6. ALPRAZOLAM [Suspect]
     Active Substance: ALPRAZOLAM
     Route: 065
  7. ALPRAZOLAM [Suspect]
     Active Substance: ALPRAZOLAM
     Dosage: ALPRAZOLAM(ALPRAZOLAM)(TABLET)
     Route: 065
  8. ALPRAZOLAM [Suspect]
     Active Substance: ALPRAZOLAM
     Dosage: UNK
  9. ATORVASTATIN CALCIUM [Suspect]
     Active Substance: ATORVASTATIN CALCIUM
     Indication: Product used for unknown indication
  10. ATORVASTATIN CALCIUM [Suspect]
     Active Substance: ATORVASTATIN CALCIUM
     Route: 065
  11. ATORVASTATIN CALCIUM [Suspect]
     Active Substance: ATORVASTATIN CALCIUM
     Route: 065
  12. ATORVASTATIN CALCIUM [Suspect]
     Active Substance: ATORVASTATIN CALCIUM
  13. AZITHROMYCIN [Suspect]
     Active Substance: AZITHROMYCIN
     Indication: Product used for unknown indication
  14. AZITHROMYCIN [Suspect]
     Active Substance: AZITHROMYCIN
     Route: 065
  15. AZITHROMYCIN [Suspect]
     Active Substance: AZITHROMYCIN
     Route: 065
  16. AZITHROMYCIN [Suspect]
     Active Substance: AZITHROMYCIN
  17. BETAMETHASONE DIPROPIONATE [Suspect]
     Active Substance: BETAMETHASONE DIPROPIONATE
     Indication: Product used for unknown indication
  18. BETAMETHASONE DIPROPIONATE [Suspect]
     Active Substance: BETAMETHASONE DIPROPIONATE
     Route: 065
  19. BETAMETHASONE DIPROPIONATE [Suspect]
     Active Substance: BETAMETHASONE DIPROPIONATE
     Route: 065
  20. BETAMETHASONE DIPROPIONATE [Suspect]
     Active Substance: BETAMETHASONE DIPROPIONATE
  21. PREGABALIN [Suspect]
     Active Substance: PREGABALIN
     Indication: Product used for unknown indication
  22. PREGABALIN [Suspect]
     Active Substance: PREGABALIN
     Route: 065
  23. PREGABALIN [Suspect]
     Active Substance: PREGABALIN
     Dosage: PREGABALIN(PREGABALIN)(CAPSULE)
     Route: 065
  24. PREGABALIN [Suspect]
     Active Substance: PREGABALIN
  25. BETAMETHASONE SODIUM PHOSPHATE [Suspect]
     Active Substance: BETAMETHASONE SODIUM PHOSPHATE
     Indication: Product used for unknown indication
  26. BETAMETHASONE SODIUM PHOSPHATE [Suspect]
     Active Substance: BETAMETHASONE SODIUM PHOSPHATE
     Route: 065
  27. BETAMETHASONE SODIUM PHOSPHATE [Suspect]
     Active Substance: BETAMETHASONE SODIUM PHOSPHATE
     Route: 065
  28. BETAMETHASONE SODIUM PHOSPHATE [Suspect]
     Active Substance: BETAMETHASONE SODIUM PHOSPHATE
  29. BUDESONIDE [Suspect]
     Active Substance: BUDESONIDE
     Indication: Product used for unknown indication
  30. BUDESONIDE [Suspect]
     Active Substance: BUDESONIDE
     Route: 065
  31. BUDESONIDE [Suspect]
     Active Substance: BUDESONIDE
     Dosage: UNKN
     Route: 065
  32. BUDESONIDE [Suspect]
     Active Substance: BUDESONIDE
  33. CALCIUM CARBONATE [Suspect]
     Active Substance: CALCIUM CARBONATE
  34. CALCIUM CARBONATE [Suspect]
     Active Substance: CALCIUM CARBONATE
  35. DESONIDE [Suspect]
     Active Substance: DESONIDE
     Indication: Product used for unknown indication
  36. DESONIDE [Suspect]
     Active Substance: DESONIDE
     Route: 065
  37. DESONIDE [Suspect]
     Active Substance: DESONIDE
     Route: 065
  38. DESONIDE [Suspect]
     Active Substance: DESONIDE
  39. ZINC [Suspect]
     Active Substance: ZINC
  40. MAGNESIUM [Suspect]
     Active Substance: MAGNESIUM
  41. FLUTICASONE FUROATE [Suspect]
     Active Substance: FLUTICASONE FUROATE
     Indication: Product used for unknown indication
  42. FLUTICASONE FUROATE [Suspect]
     Active Substance: FLUTICASONE FUROATE
     Dosage: DAILY DOSE:SPRAY, METERED DOSE
     Route: 065
  43. CLARITHROMYCIN [Suspect]
     Active Substance: CLARITHROMYCIN
     Indication: Product used for unknown indication
  44. CLARITHROMYCIN [Suspect]
     Active Substance: CLARITHROMYCIN
     Route: 065
  45. CLARITHROMYCIN [Suspect]
     Active Substance: CLARITHROMYCIN
     Dosage: BIAXIN XL(CLARITHROMYCIN)(TABLET) DAILY DOSE: TABLET-METERED DOSE
     Route: 065
  46. CLARITHROMYCIN [Suspect]
     Active Substance: CLARITHROMYCIN
  47. GLYCERIN [Suspect]
     Active Substance: GLYCERIN
     Indication: Product used for unknown indication
  48. GLYCERIN [Suspect]
     Active Substance: GLYCERIN
     Dosage: GLYCERINE(GLYCEROL)(LIQUID)
     Route: 048
  49. GLYCERIN [Suspect]
     Active Substance: GLYCERIN
  50. DIPHENHYDRAMINE [Suspect]
     Active Substance: DIPHENHYDRAMINE
     Indication: Product used for unknown indication
  51. DIPHENHYDRAMINE [Suspect]
     Active Substance: DIPHENHYDRAMINE
     Route: 065
  52. DIPHENHYDRAMINE [Suspect]
     Active Substance: DIPHENHYDRAMINE
     Route: 065
  53. DIPHENHYDRAMINE [Suspect]
     Active Substance: DIPHENHYDRAMINE
  54. PREDNISONE [Suspect]
     Active Substance: PREDNISONE
     Indication: Product used for unknown indication
  55. PREDNISONE [Suspect]
     Active Substance: PREDNISONE
     Route: 065
  56. PREDNISONE [Suspect]
     Active Substance: PREDNISONE
     Route: 065
  57. PREDNISONE [Suspect]
     Active Substance: PREDNISONE
  58. CLOTRIMAZOLE [Suspect]
     Active Substance: CLOTRIMAZOLE
     Indication: Product used for unknown indication
  59. CLOTRIMAZOLE [Suspect]
     Active Substance: CLOTRIMAZOLE
     Route: 065
  60. CLOTRIMAZOLE [Suspect]
     Active Substance: CLOTRIMAZOLE
     Route: 065
  61. CLOTRIMAZOLE [Suspect]
     Active Substance: CLOTRIMAZOLE
  62. HYDROCHLOROTHIAZIDE [Suspect]
     Active Substance: HYDROCHLOROTHIAZIDE
     Indication: Product used for unknown indication
  63. HYDROCHLOROTHIAZIDE [Suspect]
     Active Substance: HYDROCHLOROTHIAZIDE
     Route: 065
  64. HYDROCHLOROTHIAZIDE [Suspect]
     Active Substance: HYDROCHLOROTHIAZIDE
     Dosage: APO HYDRO(HYDROCHLOROTHIAZIDE)(TABLET)
     Route: 065
  65. HYDROCHLOROTHIAZIDE [Suspect]
     Active Substance: HYDROCHLOROTHIAZIDE
  66. NICODERM CQ [Suspect]
     Active Substance: NICOTINE
     Indication: Product used for unknown indication
     Dosage: PATCH
     Route: 065
  67. NICODERM CQ [Suspect]
     Active Substance: NICOTINE
     Dosage: DAILY DOSE : 1)PATCH
     Route: 065
  68. MORPHINE SULFATE [Suspect]
     Active Substance: MORPHINE SULFATE
     Indication: Product used for unknown indication
  69. MORPHINE SULFATE [Suspect]
     Active Substance: MORPHINE SULFATE
     Route: 065
  70. MORPHINE SULFATE [Suspect]
     Active Substance: MORPHINE SULFATE
     Route: 065
  71. MORPHINE SULFATE [Suspect]
     Active Substance: MORPHINE SULFATE
  72. AMOXICILLIN TRIHYDRATE [Suspect]
     Active Substance: AMOXICILLIN
     Indication: Product used for unknown indication
     Route: 065
  73. AMOXICILLIN TRIHYDRATE [Suspect]
     Active Substance: AMOXICILLIN
     Route: 065
  74. AMOXICILLIN TRIHYDRATE [Suspect]
     Active Substance: AMOXICILLIN
  75. SODIUM CHLORIDE [Suspect]
     Active Substance: SODIUM CHLORIDE
     Indication: Product used for unknown indication
     Dosage: INTRA-NASAL
     Route: 065
  76. SODIUM CHLORIDE [Suspect]
     Active Substance: SODIUM CHLORIDE
     Dosage: DAILY DOSE: INTRA-NASAL
     Route: 065
  77. SODIUM CHLORIDE [Suspect]
     Active Substance: SODIUM CHLORIDE
  78. TRIMETHOPRIM [Suspect]
     Active Substance: TRIMETHOPRIM
  79. ACETAMINOPHEN\PROPOXYPHENE HYDROCHLORIDE [Suspect]
     Active Substance: ACETAMINOPHEN\PROPOXYPHENE HYDROCHLORIDE
     Indication: Product used for unknown indication
     Route: 065
  80. SULFAMETHOXAZOLE\TRIMETHOPRIM [Suspect]
     Active Substance: SULFAMETHOXAZOLE\TRIMETHOPRIM
     Indication: Product used for unknown indication
     Route: 065
  81. SULFAMETHOXAZOLE\TRIMETHOPRIM [Suspect]
     Active Substance: SULFAMETHOXAZOLE\TRIMETHOPRIM
  82. ZINC OXIDE [Suspect]
     Active Substance: ZINC OXIDE
     Indication: Product used for unknown indication
  83. ZINC OXIDE [Suspect]
     Active Substance: ZINC OXIDE
     Route: 065
  84. ZINC OXIDE [Suspect]
     Active Substance: ZINC OXIDE
  85. NADOLOL [Suspect]
     Active Substance: NADOLOL
     Indication: Product used for unknown indication
  86. NADOLOL [Suspect]
     Active Substance: NADOLOL
     Route: 065
  87. NADOLOL [Suspect]
     Active Substance: NADOLOL
     Dosage: NADOLOL(NADOLOL)(TABLET
     Route: 065
  88. NADOLOL [Suspect]
     Active Substance: NADOLOL
  89. TRIAMCINOLONE ACETONIDE [Suspect]
     Active Substance: TRIAMCINOLONE ACETONIDE
     Indication: Product used for unknown indication
  90. TRIAMCINOLONE ACETONIDE [Suspect]
     Active Substance: TRIAMCINOLONE ACETONIDE
     Route: 014
  91. TRIAMCINOLONE ACETONIDE [Suspect]
     Active Substance: TRIAMCINOLONE ACETONIDE
     Dosage: TRIAMCINOLONE ACETONIDE)(SUSPENSION)
     Route: 014
  92. TRIAMCINOLONE ACETONIDE [Suspect]
     Active Substance: TRIAMCINOLONE ACETONIDE
     Dosage: UNK
  93. METRONIDAZOLE [Suspect]
     Active Substance: METRONIDAZOLE
     Indication: Product used for unknown indication
  94. METRONIDAZOLE [Suspect]
     Active Substance: METRONIDAZOLE
     Route: 065
  95. METRONIDAZOLE [Suspect]
     Active Substance: METRONIDAZOLE
     Route: 065
  96. METRONIDAZOLE [Suspect]
     Active Substance: METRONIDAZOLE
  97. MORPHINE SULFATE [Suspect]
     Active Substance: MORPHINE SULFATE
     Route: 065
  98. NICOTINE POLACRILEX [Suspect]
     Active Substance: NICOTINE
     Indication: Product used for unknown indication
  99. NICOTINE POLACRILEX [Suspect]
     Active Substance: NICOTINE
     Route: 065
  100. NICOTINE POLACRILEX [Suspect]
     Active Substance: NICOTINE
     Route: 065
  101. NICOTINE POLACRILEX [Suspect]
     Active Substance: NICOTINE
  102. POLYETHYLENE GLYCOLS [Suspect]
     Active Substance: POLYETHYLENE GLYCOLS
     Indication: Product used for unknown indication
  103. POLYETHYLENE GLYCOLS [Suspect]
     Active Substance: POLYETHYLENE GLYCOLS
     Route: 065
  104. POLYETHYLENE GLYCOLS [Suspect]
     Active Substance: POLYETHYLENE GLYCOLS
     Route: 065
  105. POLYETHYLENE GLYCOLS [Suspect]
     Active Substance: POLYETHYLENE GLYCOLS
  106. LOPERAMIDE [Suspect]
     Active Substance: LOPERAMIDE
     Indication: Product used for unknown indication
  107. LOPERAMIDE [Suspect]
     Active Substance: LOPERAMIDE
     Route: 048
  108. LOPERAMIDE [Suspect]
     Active Substance: LOPERAMIDE
     Dosage: UNK
  109. MESALAMINE [Suspect]
     Active Substance: MESALAMINE
     Indication: Product used for unknown indication
  110. MESALAMINE [Suspect]
     Active Substance: MESALAMINE
     Route: 065
  111. MESALAMINE [Suspect]
     Active Substance: MESALAMINE
     Dosage: UNKN
     Route: 065
  112. MESALAMINE [Suspect]
     Active Substance: MESALAMINE
  113. PANTOPRAZOLE SODIUM [Suspect]
     Active Substance: PANTOPRAZOLE SODIUM
     Indication: Product used for unknown indication
  114. PANTOPRAZOLE SODIUM [Suspect]
     Active Substance: PANTOPRAZOLE SODIUM
     Route: 065
  115. PANTOPRAZOLE SODIUM [Suspect]
     Active Substance: PANTOPRAZOLE SODIUM
     Dosage: PANTOPRAZOLE SODIUM(PANTOPRAZOLE SODIUM SESQUIHYDRATE)
     Route: 065
  116. PANTOPRAZOLE SODIUM [Suspect]
     Active Substance: PANTOPRAZOLE SODIUM
  117. BIAXIN [Suspect]
     Active Substance: CLARITHROMYCIN
     Indication: Product used for unknown indication
  118. BIAXIN [Suspect]
     Active Substance: CLARITHROMYCIN
     Dosage: TABLET-METERED DOSE
     Route: 065
  119. BIAXIN [Suspect]
     Active Substance: CLARITHROMYCIN
  120. CALCIUM [Suspect]
     Active Substance: CALCIUM
  121. POTASSIUM PHOSPHATE, MONOBASIC [Suspect]
     Active Substance: POTASSIUM PHOSPHATE, MONOBASIC
  122. VITAMIN D3 [Suspect]
     Active Substance: CHOLECALCIFEROL
  123. CETIRIZINE [Suspect]
     Active Substance: CETIRIZINE HYDROCHLORIDE
     Indication: Allergy prophylaxis
  124. CETIRIZINE [Suspect]
     Active Substance: CETIRIZINE HYDROCHLORIDE
     Route: 065
  125. CETIRIZINE [Suspect]
     Active Substance: CETIRIZINE HYDROCHLORIDE
     Dosage: CETIRIZINE(CETIRIZINE)(TABLET)
     Route: 065
  126. CETIRIZINE [Suspect]
     Active Substance: CETIRIZINE HYDROCHLORIDE
  127. COPPER [Suspect]
     Active Substance: COPPER
  128. .ALPHA.-TOCOPHEROL, D- [Suspect]
     Active Substance: .ALPHA.-TOCOPHEROL, D-
  129. VITAMIN C [Suspect]
     Active Substance: ASCORBIC ACID
  130. XANTOFYL PALMITATE [Suspect]
     Active Substance: XANTOFYL PALMITATE
     Indication: Product used for unknown indication
  131. XANTOFYL PALMITATE [Suspect]
     Active Substance: XANTOFYL PALMITATE
     Route: 065
  132. ZEAXANTHIN [Suspect]
     Active Substance: ZEAXANTHIN
     Indication: Product used for unknown indication
  133. ZEAXANTHIN [Suspect]
     Active Substance: ZEAXANTHIN
     Route: 065
  134. CUPRIC OXIDE [Suspect]
     Active Substance: CUPRIC OXIDE
     Indication: Product used for unknown indication
  135. CUPRIC OXIDE [Suspect]
     Active Substance: CUPRIC OXIDE
     Route: 065
  136. CUPRIC OXIDE [Suspect]
     Active Substance: CUPRIC OXIDE
     Route: 065
  137. CUPRIC OXIDE [Suspect]
     Active Substance: CUPRIC OXIDE
  138. ACETAMINOPHEN [Suspect]
     Active Substance: ACETAMINOPHEN
  139. ACETAMINOPHEN [Suspect]
     Active Substance: ACETAMINOPHEN
  140. DILAUDID [Suspect]
     Active Substance: HYDROMORPHONE HYDROCHLORIDE
     Indication: Product used for unknown indication
  141. DILAUDID [Suspect]
     Active Substance: HYDROMORPHONE HYDROCHLORIDE
     Route: 065
  142. DILAUDID [Suspect]
     Active Substance: HYDROMORPHONE HYDROCHLORIDE
  143. ATROPINE [Suspect]
     Active Substance: ATROPINE
     Indication: Product used for unknown indication
     Route: 048
  144. .ALPHA.-TOCOPHEROL ACETATE, DL- [Suspect]
     Active Substance: .ALPHA.-TOCOPHEROL ACETATE, DL-
     Indication: Product used for unknown indication
  145. .ALPHA.-TOCOPHEROL ACETATE, DL- [Suspect]
     Active Substance: .ALPHA.-TOCOPHEROL ACETATE, DL-
     Route: 065
  146. .ALPHA.-TOCOPHEROL ACETATE, DL- [Suspect]
     Active Substance: .ALPHA.-TOCOPHEROL ACETATE, DL-
     Route: 065
  147. .ALPHA.-TOCOPHEROL ACETATE, DL- [Suspect]
     Active Substance: .ALPHA.-TOCOPHEROL ACETATE, DL-
  148. ATROPINE [Suspect]
     Active Substance: ATROPINE
     Indication: Product used for unknown indication
  149. ATROPINE [Suspect]
     Active Substance: ATROPINE
     Route: 048
  150. ATROPINE [Suspect]
     Active Substance: ATROPINE
     Route: 048
  151. ERTAPENEM SODIUM [Suspect]
     Active Substance: ERTAPENEM SODIUM
     Indication: Product used for unknown indication
  152. ERTAPENEM SODIUM [Suspect]
     Active Substance: ERTAPENEM SODIUM
     Route: 065
  153. ERTAPENEM SODIUM [Suspect]
     Active Substance: ERTAPENEM SODIUM
     Route: 065
  154. ERTAPENEM SODIUM [Suspect]
     Active Substance: ERTAPENEM SODIUM
  155. PROPOXYPHENE HYDROCHLORIDE [Suspect]
     Active Substance: PROPOXYPHENE HYDROCHLORIDE
  156. HABITROL [Suspect]
     Active Substance: NICOTINE
     Indication: Product used for unknown indication
  157. HABITROL [Suspect]
     Active Substance: NICOTINE
     Dosage: PATCH
     Route: 065
  158. HABITROL [Suspect]
     Active Substance: NICOTINE
  159. HUMIRA [Suspect]
     Active Substance: ADALIMUMAB
     Indication: Crohn^s disease
  160. HUMIRA [Suspect]
     Active Substance: ADALIMUMAB
     Route: 058
  161. HUMIRA [Suspect]
     Active Substance: ADALIMUMAB
     Dosage: UNK
  162. KENALOG [Suspect]
     Active Substance: TRIAMCINOLONE ACETONIDE
     Indication: Product used for unknown indication
  163. KENALOG [Suspect]
     Active Substance: TRIAMCINOLONE ACETONIDE
     Route: 014
  164. KENALOG [Suspect]
     Active Substance: TRIAMCINOLONE ACETONIDE
  165. BACTROBAN [Suspect]
     Active Substance: MUPIROCIN\MUPIROCIN CALCIUM
     Indication: Product used for unknown indication
  166. BACTROBAN [Suspect]
     Active Substance: MUPIROCIN\MUPIROCIN CALCIUM
     Route: 065
  167. BACTROBAN [Suspect]
     Active Substance: MUPIROCIN\MUPIROCIN CALCIUM
  168. LOPERAMIDE HYDROCHLORIDE [Suspect]
     Active Substance: LOPERAMIDE HYDROCHLORIDE
  169. MUPIROCIN CALCIUM [Suspect]
     Active Substance: MUPIROCIN CALCIUM
     Indication: Product used for unknown indication
  170. MUPIROCIN CALCIUM [Suspect]
     Active Substance: MUPIROCIN CALCIUM
     Route: 065
  171. MUPIROCIN CALCIUM [Suspect]
     Active Substance: MUPIROCIN CALCIUM
     Route: 061
  172. MUPIROCIN CALCIUM [Suspect]
     Active Substance: MUPIROCIN CALCIUM
     Route: 065
  173. MUPIROCIN CALCIUM [Suspect]
     Active Substance: MUPIROCIN CALCIUM
     Route: 061
  174. NEOMYCIN [Suspect]
     Active Substance: NEOMYCIN
     Indication: Product used for unknown indication
  175. NEOMYCIN [Suspect]
     Active Substance: NEOMYCIN
     Route: 065
  176. NEOMYCIN [Suspect]
     Active Substance: NEOMYCIN
     Route: 065
  177. PROPYLENE GLYCOL [Suspect]
     Active Substance: PROPYLENE GLYCOL
  178. SULFAMETHOXAZOLE [Suspect]
     Active Substance: SULFAMETHOXAZOLE
  179. ZEAXANTHIN [Suspect]
     Active Substance: ZEAXANTHIN
  180. ACETAMINOPHEN [Suspect]
     Active Substance: ACETAMINOPHEN
     Indication: Product used for unknown indication
     Route: 065
  181. HYDROCHLOROTHIAZIDE [Suspect]
     Active Substance: HYDROCHLOROTHIAZIDE
     Indication: Product used for unknown indication
     Route: 065
  182. HYDROCHLOROTHIAZIDE [Suspect]
     Active Substance: HYDROCHLOROTHIAZIDE
  183. ATROPINE SULFATE\DIPHENOXYLATE HYDROCHLORIDE [Suspect]
     Active Substance: ATROPINE SULFATE\DIPHENOXYLATE HYDROCHLORIDE
     Indication: Product used for unknown indication
     Route: 048
  184. FLUTICASONE FUROATE [Suspect]
     Active Substance: FLUTICASONE FUROATE
     Indication: Product used for unknown indication
     Dosage: SPRAY, METERED DOSE
     Route: 065
  185. FLUTICASONE FUROATE [Suspect]
     Active Substance: FLUTICASONE FUROATE
  186. ADALIMUMAB [Suspect]
     Active Substance: ADALIMUMAB
     Indication: Crohn^s disease
     Dosage: HUMIRA(ADALIMUMAB)(SOLUTION)
     Route: 058
  187. DIPHENOXYLATE HYDROCHLORIDE [Suspect]
     Active Substance: DIPHENOXYLATE HYDROCHLORIDE
  188. MINERALS [Suspect]
     Active Substance: MINERALS
     Indication: Product used for unknown indication
     Route: 065
  189. MINERALS [Suspect]
     Active Substance: MINERALS
     Route: 065
  190. CALCIUM CARBONATE\CHOLECALCIFEROL [Suspect]
     Active Substance: CALCIUM CARBONATE\CHOLECALCIFEROL
     Indication: Product used for unknown indication
     Route: 065
  191. CALCIUM CARBONATE\CHOLECALCIFEROL [Suspect]
     Active Substance: CALCIUM CARBONATE\CHOLECALCIFEROL
     Route: 065
  192. FLUTICASONE [Suspect]
     Active Substance: FLUTICASONE
     Indication: Product used for unknown indication
     Route: 065
  193. FLUTICASONE [Suspect]
     Active Substance: FLUTICASONE
     Route: 065
  194. FLUTICASONE [Suspect]
     Active Substance: FLUTICASONE
  195. GRAMICIDIN [Suspect]
     Active Substance: GRAMICIDIN
     Indication: Product used for unknown indication
     Route: 065
  196. GRAMICIDIN [Suspect]
     Active Substance: GRAMICIDIN
     Route: 065
  197. GRAMICIDIN [Suspect]
     Active Substance: GRAMICIDIN
  198. LOPERAMIDE HYDROCHLORIDE [Suspect]
     Active Substance: LOPERAMIDE HYDROCHLORIDE
     Indication: Product used for unknown indication
     Route: 048
  199. LOPERAMIDE HYDROCHLORIDE [Suspect]
     Active Substance: LOPERAMIDE HYDROCHLORIDE
  200. POLYETHYLENE GLYCOL\PROPYLENE GLYCOL\SODIUM CHLORIDE [Suspect]
     Active Substance: POLYETHYLENE GLYCOL\PROPYLENE GLYCOL\SODIUM CHLORIDE
     Indication: Product used for unknown indication
     Dosage: INTRA-NASAL
     Route: 065
  201. POLYETHYLENE GLYCOL\PROPYLENE GLYCOL\SODIUM CHLORIDE [Suspect]
     Active Substance: POLYETHYLENE GLYCOL\PROPYLENE GLYCOL\SODIUM CHLORIDE
     Dosage: DAILY DOSE : 1)INTRA-NASAL ROUTE OF ADMIN : 1)UNKNOWN
  202. MAGNESIUM [Suspect]
     Active Substance: MAGNESIUM
     Indication: Product used for unknown indication
     Route: 065
  203. MAGNESIUM [Suspect]
     Active Substance: MAGNESIUM
  204. SODIUM BICARBONATE\SODIUM CHLORIDE [Suspect]
     Active Substance: SODIUM BICARBONATE\SODIUM CHLORIDE
     Indication: Product used for unknown indication
     Dosage: INTRA-NASAL
     Route: 045
  205. SODIUM BICARBONATE\SODIUM CHLORIDE [Suspect]
     Active Substance: SODIUM BICARBONATE\SODIUM CHLORIDE
  206. ACETAMINOPHEN [Suspect]
     Active Substance: ACETAMINOPHEN
     Dosage: ACETAMINOPHENE(PARACETAMOL)(TABLET)
     Route: 065
  207. CLARITHROMYCIN [Suspect]
     Active Substance: CLARITHROMYCIN
     Route: 065
  208. HYDROMORPHONE HYDROCHLORIDE [Suspect]
     Active Substance: HYDROMORPHONE HYDROCHLORIDE
     Route: 065
  209. NICOTINE [Suspect]
     Active Substance: NICOTINE
     Dosage: DAILY DOSE: PATCH
     Route: 065
  210. HYDROCHLOROTHIAZIDE [Suspect]
     Active Substance: HYDROCHLOROTHIAZIDE
     Dosage: HYDROCHLOROTHIAZIDE(HYDROCHLOROTHIAZIDE)(TABLET)
     Route: 065
  211. TRIAMCINOLONE ACETONIDE [Suspect]
     Active Substance: TRIAMCINOLONE ACETONIDE
     Dosage: KENALOG [TRIAMCINOLONE ACETONIDE](TRIAMCINOLONE ACETONIDE)(SUSPENSION)
     Route: 014
  212. LOPERAMIDE HYDROCHLORIDE [Suspect]
     Active Substance: LOPERAMIDE HYDROCHLORIDE
     Dosage: LOMOTIL(LOPERAMIDE HYDROCHLORIDE)(TABLET)
     Route: 048
  213. MAGNESIUM HYDROXIDE [Suspect]
     Active Substance: MAGNESIUM HYDROXIDE
     Route: 065
  214. CARBOXYMETHYLCELLULOSE SODIUM [Suspect]
     Active Substance: CARBOXYMETHYLCELLULOSE SODIUM
     Dosage: REFRESH TEARS(CARMELLOSE SODIUM)(DROPS)
     Route: 047
  215. MUPIROCIN [Suspect]
     Active Substance: MUPIROCIN
     Route: 065
  216. MUPIROCIN [Suspect]
     Active Substance: MUPIROCIN
  217. SODIUM BICARBONATE\SODIUM CHLORIDE [Suspect]
     Active Substance: SODIUM BICARBONATE\SODIUM CHLORIDE
     Dosage: DAILY DOSE : 1)INTRA-NASAL
     Route: 045
  218. ACETAMINOPHEN\PROPOXYPHENE HYDROCHLORIDE [Suspect]
     Active Substance: ACETAMINOPHEN\PROPOXYPHENE HYDROCHLORIDE
     Route: 065
  219. ERGOCALCIFEROL [Suspect]
     Active Substance: ERGOCALCIFEROL
     Indication: Product used for unknown indication
     Route: 065
  220. ERGOCALCIFEROL [Suspect]
     Active Substance: ERGOCALCIFEROL
     Dosage: VITAMIN D(ERGOCALCIFEROL)(CAPSULE)
     Route: 065
  221. ATROPINE SULFATE\DIFENOXIN HYDROCHLORIDE [Suspect]
     Active Substance: ATROPINE SULFATE\DIFENOXIN HYDROCHLORIDE
     Route: 048
  222. POLYMYXIN B [Suspect]
     Active Substance: POLYMYXIN B
     Indication: Product used for unknown indication
     Route: 065
  223. POLYMYXIN B [Suspect]
     Active Substance: POLYMYXIN B
     Route: 065
  224. POLYMYXIN B [Suspect]
     Active Substance: POLYMYXIN B
  225. REFRESH TEARS [Suspect]
     Active Substance: CARBOXYMETHYLCELLULOSE SODIUM
     Indication: Product used for unknown indication
     Route: 047
  226. REFRESH TEARS [Suspect]
     Active Substance: CARBOXYMETHYLCELLULOSE SODIUM
  227. MORPHINE SULFATE [Suspect]
     Active Substance: MORPHINE SULFATE
     Indication: Product used for unknown indication
     Route: 065
  228. MORPHINE SULFATE [Suspect]
     Active Substance: MORPHINE SULFATE
  229. VALSARTAN [Concomitant]
     Active Substance: VALSARTAN
  230. VALSARTAN [Concomitant]
     Active Substance: VALSARTAN
  231. VALSARTAN [Concomitant]
     Active Substance: VALSARTAN
  232. MINERALS\VITAMINS [Suspect]
     Active Substance: MINERALS\VITAMINS
  233. POTASSIUM PHOSPHATE, MONOBASIC [Suspect]
     Active Substance: POTASSIUM PHOSPHATE, MONOBASIC
  234. IRON\MINERALS\VITAMINS [Suspect]
     Active Substance: IRON\MINERALS\VITAMINS
  235. VITAMIN D NOS [Suspect]
     Active Substance: VITAMIN D NOS

REACTIONS (2)
  - Macular degeneration [Unknown]
  - Drug ineffective [Unknown]
